FAERS Safety Report 8448249-5 (Version None)
Quarter: 2012Q2

REPORT INFORMATION
  Report Type: 
  Country: None (occurrence: None)
  Receive Date: 20120619
  Receipt Date: 20120403
  Transmission Date: 20120825
  Serious: No
  Sender: FDA-Public Use
  Company Number: US-FOUGERA-2012FO001049

PATIENT
  Age: 75 Year
  Sex: Male
  Weight: 92.99 kg

DRUGS (1)
  1. IMIQUIMOD [Suspect]
     Indication: ACTINIC KERATOSIS
     Route: 061
     Dates: start: 20120325

REACTIONS (2)
  - DRUG ADMINISTRATION ERROR [None]
  - APPLICATION SITE PRURITUS [None]
